FAERS Safety Report 21852823 (Version 2)
Quarter: 2023Q1

REPORT INFORMATION
  Report Type: Spontaneous
  Country: JO (occurrence: JO)
  Receive Date: 20230112
  Receipt Date: 20230130
  Transmission Date: 20230418
  Serious: Yes (Death, Hospitalization, Other)
  Sender: FDA-Public Use
  Company Number: JO-SA-SAC20221226000609

PATIENT
  Age: 11 Year
  Sex: Female
  Weight: 40 kg

DRUGS (1)
  1. MYOZYME [Suspect]
     Active Substance: ALGLUCOSIDASE ALFA
     Indication: Glycogen storage disease type II
     Dosage: 600 MG (20 MG/KG), QOW
     Route: 065
     Dates: end: 20221216

REACTIONS (2)
  - Pneumonia [Fatal]
  - Cardiac failure [Fatal]
